FAERS Safety Report 8086028-1 (Version None)
Quarter: 2012Q1

REPORT INFORMATION
  Report Type: 
  Country: None (occurrence: None)
  Receive Date: 20120128
  Receipt Date: 20110610
  Transmission Date: 20120608
  Serious: No
  Sender: FDA-Public Use
  Company Number: US-ABBOTT-11P-163-0731511-00

PATIENT
  Age: 56 Year
  Sex: Female

DRUGS (23)
  1. POTASSIUM HCL [Concomitant]
     Indication: BLOOD POTASSIUM DECREASED
     Dosage: 20 MEQ - 8 TIMES PER DAY
  2. DIOVAN [Concomitant]
     Indication: BLOOD PRESSURE
     Dosage: 20 MG - DAILY
  3. CYMBALTA [Concomitant]
     Indication: RHEUMATOID ARTHRITIS
     Dosage: 60 MG - DAILY
  4. ATROVENT [Concomitant]
     Indication: CHRONIC OBSTRUCTIVE PULMONARY DISEASE
     Dosage: QID
  5. GLIPIZIDE [Concomitant]
     Indication: DIABETES MELLITUS
     Dosage: 5 MG - BID
  6. SPRIVEA [Concomitant]
     Indication: CHRONIC OBSTRUCTIVE PULMONARY DISEASE
     Dosage: 18 MCG - DAILY
  7. FOLIC ACID [Concomitant]
     Indication: VITAMIN SUPPLEMENTATION
     Dosage: DAILY
  8. ATROVENT [Concomitant]
     Indication: CHRONIC OBSTRUCTIVE PULMONARY DISEASE
  9. LORTAB [Concomitant]
     Indication: ARTHRALGIA
  10. JANUVIA [Concomitant]
     Indication: DIABETES MELLITUS
     Dosage: 50 MG - DAILY
  11. TORSEMIDE [Concomitant]
     Indication: DIURETIC THERAPY
     Dosage: 100 MG - DAILY
  12. HUMIRA [Suspect]
     Indication: RHEUMATOID ARTHRITIS
     Dates: start: 20110606
  13. LORTAB [Concomitant]
  14. LORTAB [Concomitant]
     Indication: RHEUMATOID ARTHRITIS
  15. ALLOPURINOL [Concomitant]
     Indication: BLOOD URIC ACID INCREASED
     Dosage: 300 MG - BID
  16. PRAVASTATIN [Concomitant]
     Indication: BLOOD CHOLESTEROL
     Dosage: 20 MG - DAILY
  17. VITAMIN D [Concomitant]
     Indication: VITAMIN SUPPLEMENTATION
     Dosage: WEEKLY
  18. IPRATROPIUM BROMIDE [Concomitant]
     Indication: SINUS DISORDER
     Dosage: 2 SPRAYS EACH NOSTRIL DAILY
     Route: 045
  19. LORTAB [Concomitant]
  20. GABAPENTIN [Concomitant]
     Indication: RHEUMATOID ARTHRITIS
     Dosage: 300 MG - QID
  21. PANTOPRAZOLE [Concomitant]
     Indication: GASTROOESOPHAGEAL REFLUX DISEASE
     Dosage: 40 MG - DAILY
  22. MAGNESIUM [Concomitant]
     Indication: MINERAL SUPPLEMENTATION
     Dosage: 200 MG - DAILY
  23. NASONEX [Concomitant]
     Indication: SINUS DISORDER
     Dosage: 50 MG - 2 SPRAYS EACH NOSTRIL DAILY
     Route: 045

REACTIONS (2)
  - ONYCHALGIA [None]
  - ARTHRALGIA [None]
